FAERS Safety Report 17479960 (Version 1)
Quarter: 2020Q1

REPORT INFORMATION
  Report Type: Spontaneous
  Country: ES (occurrence: ES)
  Receive Date: 20200228
  Receipt Date: 20200228
  Transmission Date: 20200409
  Serious: Yes (Other)
  Sender: FDA-Public Use
  Company Number: ES-CELGENEUS-ESP-20200209853

PATIENT
  Age: 41 Year
  Sex: Male

DRUGS (1)
  1. OTEZLA [Suspect]
     Active Substance: APREMILAST
     Indication: NAIL PSORIASIS
     Dosage: 60 MILLIGRAM
     Route: 048
     Dates: start: 20181203

REACTIONS (1)
  - Pharyngotonsillitis [Recovered/Resolved]

NARRATIVE: CASE EVENT DATE: 20191113
